FAERS Safety Report 10024517 (Version 1)
Quarter: 2014Q1

REPORT INFORMATION
  Report Type: Spontaneous
  Country: US (occurrence: US)
  Receive Date: 20140320
  Receipt Date: 20140320
  Transmission Date: 20141002
  Serious: No
  Sender: FDA-Public Use
  Company Number: US-009507513-1403USA000620

PATIENT
  Age: 15 Year
  Sex: Female
  Weight: 72.56 kg

DRUGS (2)
  1. CLARITIN [Suspect]
     Indication: NASOPHARYNGITIS
     Dosage: 10 MG, BID
     Route: 048
     Dates: start: 20140220
  2. VICKS DAYQUIL (OLD FORMULA) [Concomitant]
     Indication: PRODUCT USED FOR UNKNOWN INDICATION
     Dosage: UNK, UNKNOWN

REACTIONS (2)
  - Overdose [Unknown]
  - Off label use [Unknown]
